FAERS Safety Report 7901769-1 (Version None)
Quarter: 2011Q4

REPORT INFORMATION
  Report Type: 
  Country: None (occurrence: None)
  Receive Date: 20111108
  Receipt Date: 20111025
  Transmission Date: 20120403
  Serious: Yes (Other)
  Sender: FDA-Public Use
  Company Number: PHHY2011IL94665

PATIENT
  Sex: Female

DRUGS (2)
  1. SANDOSTATIN LAR [Suspect]
     Indication: CARCINOID TUMOUR
     Dosage: 20 MG, EVERY 14 DAYS
     Dates: start: 20101028
  2. SANDOSTATIN LAR [Suspect]
     Dosage: 20 MG, EVERY 14 DAYS
     Dates: start: 20111024

REACTIONS (1)
  - FALL [None]
